FAERS Safety Report 15033690 (Version 2)
Quarter: 2018Q2

REPORT INFORMATION
  Report Type: Spontaneous
  Country: JP (occurrence: JP)
  Receive Date: 20180619
  Receipt Date: 20180626
  Transmission Date: 20180711
  Serious: Yes (Hospitalization, Other)
  Sender: FDA-Public Use
  Company Number: JP-BEH-2018091060

PATIENT
  Age: 74 Year
  Sex: Female

DRUGS (4)
  1. ALBUMINAR-25 [Suspect]
     Active Substance: ALBUMIN HUMAN
     Indication: HYPOALBUMINAEMIA
  2. ALBUMINAR-25 [Suspect]
     Active Substance: ALBUMIN HUMAN
     Indication: SEPSIS
  3. ALBUMINAR-25 [Suspect]
     Active Substance: ALBUMIN HUMAN
     Indication: BLOOD ALBUMIN DECREASED
     Dosage: 12.5 G (50 ML), TOT
     Route: 041
     Dates: start: 20180524, end: 20180524
  4. ALBUMINAR-25 [Suspect]
     Active Substance: ALBUMIN HUMAN
     Indication: HYPOVOLAEMIA

REACTIONS (13)
  - Angioedema [Unknown]
  - Erythema [Recovering/Resolving]
  - Pemphigoid [Unknown]
  - Hypotension [Unknown]
  - Rash [Unknown]
  - Oedema peripheral [Recovering/Resolving]
  - Urticaria [Recovering/Resolving]
  - Localised oedema [Recovering/Resolving]
  - Extrasystoles [Recovering/Resolving]
  - Pruritus [Unknown]
  - Swelling face [Recovering/Resolving]
  - Feeling hot [Recovering/Resolving]
  - Blister [Unknown]

NARRATIVE: CASE EVENT DATE: 201805
